FAERS Safety Report 4559975-2 (Version None)
Quarter: 2005Q1

REPORT INFORMATION
  Report Type: 
  Country: None (occurrence: None)
  Receive Date: 20050120
  Receipt Date: 20050120
  Transmission Date: 20050727
  Serious: Yes (Hospitalization)
  Sender: FDA-Public Use
  Company Number: None

PATIENT
  Sex: Male
  Weight: 75 kg

DRUGS (1)
  1. VIOXX [Suspect]
     Indication: ARTHRITIS
     Dosage: 25 MG 1 TIME A DAY

REACTIONS (8)
  - ABASIA [None]
  - ARTHRITIS [None]
  - CEREBROVASCULAR ACCIDENT [None]
  - CHEST PAIN [None]
  - CONDITION AGGRAVATED [None]
  - HYPERTENSION [None]
  - PAIN [None]
  - RENAL PAIN [None]
